FAERS Safety Report 8357564-5 (Version None)
Quarter: 2012Q2

REPORT INFORMATION
  Report Type: 
  Country: None (occurrence: None)
  Receive Date: 20120514
  Receipt Date: 20120430
  Transmission Date: 20120825
  Serious: Yes (Hospitalization)
  Sender: FDA-Public Use
  Company Number: CA-MYLANLABS-2012S1009109

PATIENT
  Age: 3 Year
  Sex: Male

DRUGS (4)
  1. MEROPENEM [Suspect]
     Indication: SHUNT INFECTION
     Route: 042
  2. VANCOMYCIN [Suspect]
     Indication: BRAIN ABSCESS
     Route: 065
  3. VANCOMYCIN [Suspect]
     Indication: SHUNT INFECTION
     Route: 065
  4. MEROPENEM [Suspect]
     Indication: BRAIN ABSCESS
     Route: 042

REACTIONS (3)
  - SERUM SICKNESS-LIKE REACTION [None]
  - PANCYTOPENIA [None]
  - COAGULOPATHY [None]
